FAERS Safety Report 12936918 (Version 1)
Quarter: 2016Q4

REPORT INFORMATION
  Report Type: Spontaneous
  Country: US (occurrence: US)
  Receive Date: 20161114
  Receipt Date: 20161114
  Transmission Date: 20170207
  Serious: Yes (Other)
  Sender: FDA-Public Use
  Company Number: US-CELGENEUS-USA-2016111740

PATIENT
  Sex: Female

DRUGS (1)
  1. REVLIMID [Suspect]
     Active Substance: LENALIDOMIDE
     Indication: PLASMA CELL MYELOMA
     Dosage: 25 MILLIGRAM
     Route: 048
     Dates: start: 20161027

REACTIONS (7)
  - Paraesthesia [Unknown]
  - Syncope [Unknown]
  - Head discomfort [Unknown]
  - Depressed mood [Unknown]
  - Asthenia [Unknown]
  - Feeling hot [Unknown]
  - Fatigue [Unknown]

NARRATIVE: CASE EVENT DATE: 2016
